FAERS Safety Report 10385899 (Version 1)
Quarter: 2014Q3

REPORT INFORMATION
  Report Type: Spontaneous
  Country: US (occurrence: US)
  Receive Date: 20140814
  Receipt Date: 20140814
  Transmission Date: 20150326
  Serious: No
  Sender: FDA-Public Use
  Company Number: US-GALDERMA-US13003801

PATIENT
  Sex: Female

DRUGS (1)
  1. DIFFERIN [Suspect]
     Active Substance: ADAPALENE
     Route: 061

REACTIONS (4)
  - Rash erythematous [Unknown]
  - Urticaria [Unknown]
  - Hypersensitivity [Unknown]
  - Dermatitis [Unknown]
